FAERS Safety Report 4268722-3 (Version None)
Quarter: 2004Q1

REPORT INFORMATION
  Report Type: 
  Country: None (occurrence: None)
  Receive Date: 20040112
  Receipt Date: 20031230
  Transmission Date: 20041129
  Serious: Yes (Hospitalization)
  Sender: FDA-Public Use
  Company Number: PHEH2003US11717

PATIENT
  Age: 40 Year
  Sex: Male

DRUGS (2)
  1. CLOZARIL [Suspect]
     Dosage: UNK,UNK
     Route: 048
  2. PHENYTOIN [Suspect]
     Dosage: UNK,UNK

REACTIONS (3)
  - DIZZINESS [None]
  - DRUG TOXICITY [None]
  - MENTAL STATUS CHANGES [None]
